FAERS Safety Report 7568109-1 (Version None)
Quarter: 2011Q2

REPORT INFORMATION
  Report Type: 
  Country: None (occurrence: None)
  Receive Date: 20110623
  Receipt Date: 20110614
  Transmission Date: 20111010
  Serious: Yes (Death)
  Sender: FDA-Public Use
  Company Number: SE-ACTELION-A-CH2011-50302

PATIENT
  Age: 63 Year
  Sex: Male
  Weight: 120 kg

DRUGS (1)
  1. TRACLEER [Suspect]
     Indication: PULMONARY ARTERIAL HYPERTENSION
     Dosage: UNK
     Route: 048
     Dates: start: 20110401, end: 20110501

REACTIONS (4)
  - FLUID RETENTION [None]
  - RENAL FAILURE [None]
  - WEIGHT INCREASED [None]
  - CONCOMITANT DISEASE AGGRAVATED [None]
